FAERS Safety Report 6502355-0 (Version None)
Quarter: 2009Q4

REPORT INFORMATION
  Report Type: 
  Country: None (occurrence: None)
  Receive Date: 20091203
  Receipt Date: 20091118
  Transmission Date: 20100525
  Serious: Yes (Death)
  Sender: FDA-Public Use
  Company Number: 2009SA003896

PATIENT
  Age: 88 Year
  Sex: Male

DRUGS (7)
  1. FLUDARABINE PHOSPHATE [Suspect]
     Indication: MANTLE CELL LYMPHOMA STAGE III
     Dosage: 60 MILLIGRAM(S);DAILY;ORAL; 60 MILLIGRAM (S);DAILY;ORAL
     Route: 048
     Dates: start: 20080319, end: 20080319
  2. FLUDARABINE PHOSPHATE [Suspect]
     Indication: MANTLE CELL LYMPHOMA STAGE III
     Dosage: 60 MILLIGRAM(S);DAILY;ORAL; 60 MILLIGRAM (S);DAILY;ORAL
     Route: 048
     Dates: start: 20080412, end: 20080416
  3. RITUXIMAB [Concomitant]
  4. CYCLOPHOSPHAMIDE [Concomitant]
  5. VINCRISTINE [Concomitant]
  6. PREDNISOLONE [Concomitant]
  7. DIFLUCAN [Concomitant]

REACTIONS (3)
  - DISEASE PROGRESSION [None]
  - NEUTROPHIL COUNT DECREASED [None]
  - NON-HODGKIN'S LYMPHOMA [None]
